FAERS Safety Report 11957355 (Version 2)
Quarter: 2016Q1

REPORT INFORMATION
  Report Type: Report from Study
  Country: CO (occurrence: CO)
  Receive Date: 20160126
  Receipt Date: 20160209
  Transmission Date: 20160526
  Serious: Yes (Death, Hospitalization, Other)
  Sender: FDA-Public Use
  Company Number: PHHY2016CO009252

PATIENT
  Sex: Female
  Weight: 47 kg

DRUGS (2)
  1. EXEMESTANE. [Concomitant]
     Active Substance: EXEMESTANE
     Indication: PRODUCT USED FOR UNKNOWN INDICATION
     Dosage: 25 MG, QD
     Route: 048
  2. AFINITOR [Suspect]
     Active Substance: EVEROLIMUS
     Indication: BREAST CANCER
     Dosage: 10 MG, QD
     Route: 048
     Dates: start: 20151104, end: 20160104

REACTIONS (11)
  - Nausea [Unknown]
  - Malignant neoplasm progression [Fatal]
  - Decreased appetite [Unknown]
  - Blood glucose decreased [Unknown]
  - Blood phosphorus abnormal [Unknown]
  - Generalised oedema [Unknown]
  - Blood magnesium abnormal [Unknown]
  - Urinary retention [Unknown]
  - Hypotension [Unknown]
  - Vomiting [Unknown]
  - Metastases to liver [Fatal]
